FAERS Safety Report 5323263-7 (Version None)
Quarter: 2007Q2

REPORT INFORMATION
  Report Type: 
  Country: None (occurrence: None)
  Receive Date: 20070220
  Receipt Date: 20061201
  Transmission Date: 20071010
  Serious: No
  Sender: FDA-Public Use
  Company Number: WAES 0612USA00379

PATIENT
  Age: 61 Year
  Sex: Male
  Weight: 103.4201 kg

DRUGS (4)
  1. JANUVIA [Suspect]
     Indication: DIABETES MELLITUS
     Dosage: 100 MG/DAILY/PO
     Route: 048
     Dates: start: 20061117, end: 20061121
  2. ALDACTONE [Concomitant]
  3. AVANDIA [Concomitant]
  4. NEXIUM [Concomitant]

REACTIONS (5)
  - FATIGUE [None]
  - INFLUENZA LIKE ILLNESS [None]
  - INTERVERTEBRAL DISC DISORDER [None]
  - MALAISE [None]
  - MYALGIA [None]
